FAERS Safety Report 15010041 (Version 1)
Quarter: 2018Q2

REPORT INFORMATION
  Report Type: Spontaneous
  Country: US (occurrence: US)
  Receive Date: 20180614
  Receipt Date: 20180614
  Transmission Date: 20180711
  Serious: No
  Sender: FDA-Public Use
  Company Number: US-PFIZER INC-2018241671

PATIENT
  Age: 59 Year
  Sex: Female
  Weight: 67.12 kg

DRUGS (7)
  1. LYRICA [Concomitant]
     Active Substance: PREGABALIN
     Indication: PAIN
     Dosage: 100 MG, 3X/DAY
     Route: 048
     Dates: start: 2015
  2. METFORMIN [Concomitant]
     Active Substance: METFORMIN HYDROCHLORIDE
     Indication: DIABETES MELLITUS
     Dosage: 500 MG, 1X/DAY (500MG TABLETS ONCE A DAY BY MOUTH)
     Route: 048
     Dates: start: 2018
  3. MS CONTIN [Concomitant]
     Active Substance: MORPHINE SULFATE
     Indication: PAIN
     Dosage: 30 MG, UNK (30MG TABLET EVERY 12 HOURS BY MOUTH)
     Route: 048
  4. LYRICA [Concomitant]
     Active Substance: PREGABALIN
     Indication: BACK PAIN
  5. ASPIRIN. [Concomitant]
     Active Substance: ASPIRIN
     Indication: ATRIAL SEPTAL DEFECT
     Dosage: UNK, 1X/DAY (LOW DOSE BABY ASPIRIN ONCE A DAY BY MOUTH)
     Route: 048
     Dates: start: 2008
  6. CHANTIX [Suspect]
     Active Substance: VARENICLINE TARTRATE
     Indication: SMOKING CESSATION THERAPY
     Dosage: 1 MG, 2X/DAY (1MG TABLET TWICE A DAY BY MOUTH)
     Route: 048
     Dates: start: 201802
  7. LIPITOR [Concomitant]
     Active Substance: ATORVASTATIN CALCIUM
     Indication: BLOOD CHOLESTEROL ABNORMAL
     Dosage: 10 MG, 1X/DAY (10MG TABLET ONCE A DAY BY MOUTH)
     Route: 048
     Dates: start: 2013

REACTIONS (2)
  - Stress [Unknown]
  - Drug effect incomplete [Not Recovered/Not Resolved]
